FAERS Safety Report 16120064 (Version 5)
Quarter: 2019Q4

REPORT INFORMATION
  Report Type: Report from Study
  Country: US (occurrence: US)
  Receive Date: 20190326
  Receipt Date: 20191018
  Transmission Date: 20200122
  Serious: Yes (Death, Life-Threatening, Other)
  Sender: FDA-Public Use
  Company Number: PHHY2018US201300

PATIENT
  Age: 77 Year
  Sex: Male

DRUGS (6)
  1. EVEROLIMUS. [Concomitant]
     Active Substance: EVEROLIMUS
     Indication: PRODUCT USED FOR UNKNOWN INDICATION
     Route: 065
  2. KYMRIAH [Suspect]
     Active Substance: TISAGENLECLEUCEL
     Indication: HIGH-GRADE B-CELL LYMPHOMA
     Dosage: UNK, ONCE/SINGLE
     Route: 041
     Dates: start: 2018
  3. FLUDARABINE [Concomitant]
     Active Substance: FLUDARABINE PHOSPHATE
     Indication: CHEMOTHERAPY
     Route: 065
  4. CYCLOPHOSPHAMIDE. [Concomitant]
     Active Substance: CYCLOPHOSPHAMIDE
     Indication: CHEMOTHERAPY
     Route: 065
  5. RITUXIMAB EPOCH [Concomitant]
     Active Substance: CYCLOPHOSPHAMIDE\DOXORUBICIN\ETOPOSIDE\PREDNISONE\RITUXIMAB\VINCRISTINE
     Indication: PRODUCT USED FOR UNKNOWN INDICATION
     Route: 065
  6. GEMOX [Concomitant]
     Indication: PRODUCT USED FOR UNKNOWN INDICATION
     Route: 065

REACTIONS (14)
  - High-grade B-cell lymphoma [Fatal]
  - Malignant neoplasm progression [Fatal]
  - Staphylococcal infection [Unknown]
  - Enterococcal infection [Unknown]
  - Out of specification test results [Unknown]
  - Platelet count decreased [Unknown]
  - Pseudomonas infection [Unknown]
  - Haemoglobin decreased [Unknown]
  - White blood cell count decreased [Unknown]
  - Neutrophil count decreased [Unknown]
  - Cellulitis [Unknown]
  - Lymphocyte count decreased [Unknown]
  - Corynebacterium infection [Unknown]
  - Haematocrit decreased [Unknown]
